FAERS Safety Report 4792416-9 (Version None)
Quarter: 2005Q4

REPORT INFORMATION
  Report Type: 
  Country: None (occurrence: None)
  Receive Date: 20051010
  Receipt Date: 20050929
  Transmission Date: 20060501
  Serious: Yes (Hospitalization)
  Sender: FDA-Public Use
  Company Number: 200513549EU

PATIENT
  Age: 54 Year
  Sex: Male

DRUGS (1)
  1. RILUZOLE [Suspect]
     Indication: AMYOTROPHIC LATERAL SCLEROSIS
     Route: 048
     Dates: start: 20050620, end: 20050701

REACTIONS (4)
  - DYSPEPSIA [None]
  - NAUSEA [None]
  - PRURITUS [None]
  - SOMNOLENCE [None]
